FAERS Safety Report 4416630-7 (Version None)
Quarter: 2004Q2

REPORT INFORMATION
  Report Type: 
  Country: None (occurrence: None)
  Receive Date: 20040630
  Receipt Date: 20040312
  Transmission Date: 20050107
  Serious: Yes (Other)
  Sender: FDA-Public Use
  Company Number: ENTC2004-0049

PATIENT
  Age: 79 Year
  Sex: Male

DRUGS (2)
  1. STALEVO 100 [Suspect]
     Indication: PARKINSON'S DISEASE
     Dosage: 50 MG / 12.5 MG/200 MG TWICE DAILY, ORAL
     Route: 048
     Dates: start: 20040201
  2. NEXIUM [Concomitant]

REACTIONS (2)
  - FAECAL INCONTINENCE [None]
  - URINARY INCONTINENCE [None]
